FAERS Safety Report 5387504-2 (Version None)
Quarter: 2007Q3

REPORT INFORMATION
  Report Type: 
  Country: None (occurrence: None)
  Receive Date: 20070711
  Receipt Date: 20070626
  Transmission Date: 20080115
  Serious: Yes (Death)
  Sender: FDA-Public Use
  Company Number: GXKR2007NL05063

PATIENT
  Age: 39 Year
  Sex: Female

DRUGS (2)
  1. METFORMIN HCL [Suspect]
     Indication: DIABETES MELLITUS
     Dosage: 100 TABL. OF 850 MG; ORAL
     Route: 048
  2. INSULIN (INSULIN) [Concomitant]

REACTIONS (17)
  - ANGIOPATHY [None]
  - ANURIA [None]
  - ATRIAL FIBRILLATION [None]
  - BACK PAIN [None]
  - CARDIAC ARREST [None]
  - HAEMODIALYSIS [None]
  - HYPOTENSION [None]
  - HYPOTHERMIA [None]
  - HYPOXIA [None]
  - INTENTIONAL OVERDOSE [None]
  - LACTIC ACIDOSIS [None]
  - MULTI-ORGAN FAILURE [None]
  - PULMONARY OEDEMA [None]
  - RESTLESSNESS [None]
  - SUICIDE ATTEMPT [None]
  - TACHYPNOEA [None]
  - VENTRICULAR FIBRILLATION [None]
